FAERS Safety Report 19849940 (Version 1)
Quarter: 2021Q3

REPORT INFORMATION
  Report Type: Spontaneous
  Country: AU (occurrence: AU)
  Receive Date: 20210917
  Receipt Date: 20210917
  Transmission Date: 20211014
  Serious: Yes (Death, Other)
  Sender: FDA-Public Use
  Company Number: AU-ALLERGAN-2132320US

PATIENT
  Sex: Male

DRUGS (4)
  1. MORPHINE SULFATE UNK [Suspect]
     Active Substance: MORPHINE SULFATE
     Indication: HEADACHE
     Dosage: 200 MG, QD
     Route: 048
  2. MORPHINE [Suspect]
     Active Substance: MORPHINE
     Indication: HEADACHE
     Route: 042
  3. GABAPENTIN. [Concomitant]
     Active Substance: GABAPENTIN
     Indication: HEADACHE
  4. OXYCODONE [Suspect]
     Active Substance: OXYCODONE
     Indication: HEADACHE
     Dosage: 120 MG, QD
     Route: 048

REACTIONS (5)
  - Respiratory depression [Fatal]
  - Depressed level of consciousness [Fatal]
  - Toxicity to various agents [Fatal]
  - Pneumonia aspiration [Fatal]
  - Incorrect dose administered [Unknown]
